FAERS Safety Report 23505145 (Version 1)
Quarter: 2024Q1

REPORT INFORMATION
  Report Type: Spontaneous
  Country: US (occurrence: US)
  Receive Date: 20240209
  Receipt Date: 20240209
  Transmission Date: 20240410
  Serious: Yes (Hospitalization, Other)
  Sender: FDA-Public Use
  Company Number: US-FreseniusKabi-FK202402145

PATIENT
  Age: 33 Year
  Sex: Female

DRUGS (2)
  1. GEMCITABINE [Suspect]
     Active Substance: GEMCITABINE
     Indication: Cholangiocarcinoma
     Dosage: A SECOND DOSE OF GEMCITABINE AND CISPLATIN 2 WEEKS LATER
  2. CISPLATIN [Suspect]
     Active Substance: CISPLATIN
     Indication: Cholangiocarcinoma
     Dosage: A SECOND DOSE OF GEMCITABINE AND CISPLATIN 2 WEEKS LATER

REACTIONS (5)
  - Hyperbilirubinaemia [Recovered/Resolved]
  - Escherichia urinary tract infection [Recovered/Resolved]
  - Pneumonia [Unknown]
  - Staphylococcal infection [Recovered/Resolved]
  - Bacteraemia [Recovered/Resolved]
